FAERS Safety Report 5848153-2 (Version None)
Quarter: 2008Q3

REPORT INFORMATION
  Report Type: 
  Country: None (occurrence: None)
  Receive Date: 20080818
  Receipt Date: 20080812
  Transmission Date: 20090109
  Serious: Yes (Other)
  Sender: FDA-Public Use
  Company Number: A0742204A

PATIENT
  Sex: Male

DRUGS (11)
  1. REQUIP [Suspect]
     Indication: RESTLESS LEGS SYNDROME
     Dosage: 2MG THREE TIMES PER DAY
     Route: 048
     Dates: start: 20040101
  2. REQUIP XL [Suspect]
     Indication: RESTLESS LEGS SYNDROME
     Dosage: 2MG PER DAY
     Route: 048
     Dates: start: 20080801, end: 20080801
  3. ATENOLOL [Concomitant]
  4. VYTORIN [Concomitant]
  5. TORSEMIDE [Concomitant]
  6. KLONOPIN [Concomitant]
  7. OXYCODONE HCL [Concomitant]
  8. COUMADIN [Concomitant]
  9. HUMALOG [Concomitant]
  10. POTASSIUM CHLORIDE [Concomitant]
  11. CELEBREX [Concomitant]

REACTIONS (6)
  - ARTHROPATHY [None]
  - CIRCULATORY COLLAPSE [None]
  - DRUG INEFFECTIVE [None]
  - MUSCULAR WEAKNESS [None]
  - RESTLESS LEGS SYNDROME [None]
  - TREMOR [None]
